FAERS Safety Report 23133611 (Version 3)
Quarter: 2023Q4

REPORT INFORMATION
  Report Type: Report from Study
  Country: IL (occurrence: IL)
  Receive Date: 20231101
  Receipt Date: 20231121
  Transmission Date: 20240110
  Serious: Yes (Hospitalization)
  Sender: FDA-Public Use
  Company Number: IL-Eisai Inc (Eisai China)-EC-2023-149373

PATIENT
  Age: 66 Year
  Sex: Male
  Weight: 60.6 kg

DRUGS (12)
  1. LENVATINIB [Suspect]
     Active Substance: LENVATINIB
     Indication: Colorectal cancer metastatic
     Dosage: STARTING DOSE 20 MILLIGRAM (FLUCTUAITING DOSE)
     Route: 048
     Dates: start: 20220627, end: 20230820
  2. PEMBROLIZUMAB [Suspect]
     Active Substance: PEMBROLIZUMAB
     Indication: Colorectal cancer metastatic
     Route: 042
     Dates: start: 20220627, end: 20230713
  3. BELZUTIFAN [Suspect]
     Active Substance: BELZUTIFAN
     Indication: Colorectal cancer metastatic
     Route: 048
     Dates: start: 20220627, end: 20230820
  4. TAMSULOSIN HYDROCHLORIDE [Concomitant]
     Active Substance: TAMSULOSIN HYDROCHLORIDE
     Dates: start: 20220802
  5. ASPIRIN [Concomitant]
     Active Substance: ASPIRIN
     Dates: start: 201301
  6. EUTHYROX [Concomitant]
     Active Substance: LEVOTHYROXINE SODIUM
     Dates: start: 201101, end: 20230916
  7. NEXIUM [Concomitant]
     Active Substance: ESOMEPRAZOLE MAGNESIUM
     Dates: start: 20220627
  8. ENSURE ORIGINAL [Concomitant]
     Dates: start: 20220802
  9. NORMALAX [MACROGOL 3350] [Concomitant]
     Dates: start: 20220713
  10. METOCLOPRAMIDE HYDROCHLORIDE [Concomitant]
     Active Substance: METOCLOPRAMIDE HYDROCHLORIDE
     Dates: start: 20230620
  11. LIPITOR [Concomitant]
     Active Substance: ATORVASTATIN CALCIUM
     Dates: start: 201101
  12. BISOPROLOL FUMARATE [Concomitant]
     Active Substance: BISOPROLOL FUMARATE
     Dates: start: 201301

REACTIONS (1)
  - Acute myocardial infarction [Recovered/Resolved]

NARRATIVE: CASE EVENT DATE: 20230915
